FAERS Safety Report 21215901 (Version 1)
Quarter: 2022Q3

REPORT INFORMATION
  Report Type: Spontaneous
  Country: FR (occurrence: None)
  Receive Date: 20220816
  Receipt Date: 20220816
  Transmission Date: 20221026
  Serious: Yes (Hospitalization)
  Sender: FDA-Public Use
  Company Number: FR-Orion Corporation ORION PHARMA-TREX2022-0145

PATIENT
  Age: 48 Year
  Sex: Female

DRUGS (19)
  1. METHOTREXATE [Suspect]
     Active Substance: METHOTREXATE
     Indication: Systemic lupus erythematosus
     Route: 048
     Dates: start: 20211105, end: 20211107
  2. METHOTREXATE [Suspect]
     Active Substance: METHOTREXATE
     Dosage: 1/10 DOSE
     Route: 048
     Dates: start: 20220613
  3. METHOTREXATE [Suspect]
     Active Substance: METHOTREXATE
     Dosage: 1/3 DOSE
     Route: 048
     Dates: start: 20220615
  4. METHOTREXATE [Suspect]
     Active Substance: METHOTREXATE
     Route: 048
     Dates: start: 20220617
  5. PLAQUENIL [Suspect]
     Active Substance: HYDROXYCHLOROQUINE SULFATE
     Indication: Systemic lupus erythematosus
     Dosage: 2 IN THE MORNING AND EVENING
     Route: 048
     Dates: start: 20211105, end: 20211107
  6. KARDEGIC [Suspect]
     Active Substance: ASPIRIN DL-LYSINE
     Indication: Systemic lupus erythematosus
     Dosage: AT NOON
     Route: 048
     Dates: start: 20211105, end: 20211107
  7. KARDEGIC [Suspect]
     Active Substance: ASPIRIN DL-LYSINE
     Dosage: 1/10 DOSE
     Route: 048
     Dates: start: 20220509
  8. KARDEGIC [Suspect]
     Active Substance: ASPIRIN DL-LYSINE
     Dosage: 1/3 DOSE
     Route: 048
     Dates: start: 20220511
  9. KARDEGIC [Suspect]
     Active Substance: ASPIRIN DL-LYSINE
     Route: 048
     Dates: start: 20220512
  10. PREDNISONE [Suspect]
     Active Substance: PREDNISONE
     Indication: Systemic lupus erythematosus
     Route: 048
     Dates: start: 20211105, end: 20211107
  11. PREDNISONE [Suspect]
     Active Substance: PREDNISONE
     Dosage: 1/10 DOSE, 1/3 DOSE AND TOTAL DOSE OF 10 MG
     Route: 048
     Dates: start: 20220718
  12. DEXAMETHASONE [Suspect]
     Active Substance: DEXAMETHASONE
     Indication: Systemic lupus erythematosus
     Route: 048
     Dates: start: 20211105, end: 20211107
  13. CLOPIDOGREL HYDROCHLORIDE [Suspect]
     Active Substance: CLOPIDOGREL HYDROCHLORIDE
     Indication: Systemic lupus erythematosus
     Route: 048
     Dates: start: 20211105, end: 20211107
  14. CHLOROQUINE SULFATE [Suspect]
     Active Substance: CHLOROQUINE SULFATE
     Indication: Systemic lupus erythematosus
     Route: 048
     Dates: start: 20211105, end: 20211107
  15. CHLOROQUINE SULFATE [Suspect]
     Active Substance: CHLOROQUINE SULFATE
     Dosage: 1/10 DOSE
     Route: 048
     Dates: start: 20220411
  16. CHLOROQUINE SULFATE [Suspect]
     Active Substance: CHLOROQUINE SULFATE
     Dosage: 1/3 DOSE
     Route: 048
     Dates: start: 20220413
  17. CHLOROQUINE SULFATE [Suspect]
     Active Substance: CHLOROQUINE SULFATE
     Route: 048
     Dates: start: 20220414
  18. PREDNISOLONE [Suspect]
     Active Substance: PREDNISOLONE
     Indication: Product used for unknown indication
     Route: 048
     Dates: start: 20211105, end: 20211107
  19. PANTOPRAZOLE [Concomitant]
     Active Substance: PANTOPRAZOLE
     Route: 065
     Dates: start: 20211105, end: 20211107

REACTIONS (3)
  - Rash maculo-papular [Recovered/Resolved]
  - Product use in unapproved indication [Unknown]
  - Sleep deficit [Unknown]

NARRATIVE: CASE EVENT DATE: 20211105
